FAERS Safety Report 9059675 (Version 3)
Quarter: 2013Q4

REPORT INFORMATION
  Report Type: Report from Study
  Country: DE (occurrence: DE)
  Receive Date: 20130212
  Receipt Date: 20131129
  Transmission Date: 20140711
  Serious: Yes (Hospitalization)
  Sender: FDA-Public Use
  Company Number: DE-AMGEN-DEUCT2013008425

PATIENT
  Age: 55 Year
  Sex: Female
  Weight: 67 kg

DRUGS (6)
  1. ETANERCEPT [Suspect]
     Indication: RHEUMATOID ARTHRITIS
     Dosage: 50 MG, QWK
     Route: 058
     Dates: start: 20111219, end: 20121119
  2. PREDNISOLONE [Concomitant]
     Dosage: 7.5 MG, 1X/DAY
     Route: 048
     Dates: start: 200701
  3. ARCOXIA [Concomitant]
     Dosage: 90 MG, 2X/DAY
     Route: 048
     Dates: start: 200707
  4. ARCOXIA [Concomitant]
     Dosage: 90 MG, 1X/DAY
     Route: 048
  5. MTX                                /00113801/ [Concomitant]
     Dosage: 5 MG, WEEKLY
     Route: 048
     Dates: start: 201211
  6. CALCIGEN [Concomitant]
     Indication: OSTEOPENIA
     Dosage: 800 MG, 1X/DAY
     Route: 048
     Dates: start: 200812

REACTIONS (1)
  - Drug effect incomplete [Recovered/Resolved]
